FAERS Safety Report 4825431-7 (Version None)
Quarter: 2005Q4

REPORT INFORMATION
  Report Type: 
  Country: None (occurrence: None)
  Receive Date: 20051111
  Receipt Date: 20050825
  Transmission Date: 20060501
  Serious: Yes (Hospitalization)
  Sender: FDA-Public Use
  Company Number: US-AMGEN-US147893

PATIENT
  Sex: Female

DRUGS (13)
  1. ETANERCEPT [Suspect]
     Indication: RHEUMATOID ARTHRITIS
     Route: 058
     Dates: start: 19980810
  2. METHOTREXATE [Concomitant]
     Dates: end: 20050101
  3. METHOTREXATE [Concomitant]
     Route: 048
     Dates: start: 20050801
  4. PREDNISONE [Concomitant]
     Route: 048
     Dates: end: 20050801
  5. PREDNISONE [Concomitant]
     Route: 048
     Dates: start: 20050801, end: 20050801
  6. PREDNISONE [Concomitant]
     Route: 048
     Dates: start: 20050801, end: 20050801
  7. PREDNISONE [Concomitant]
     Route: 048
     Dates: start: 20050801
  8. PREDNISONE [Concomitant]
     Route: 048
     Dates: start: 20050901
  9. ATACAND [Concomitant]
     Route: 048
  10. GLUCOPHAGE [Concomitant]
     Route: 048
  11. ACTONEL [Concomitant]
  12. CALCIUM WITH VITAMIN D [Concomitant]
  13. FOLIC ACID [Concomitant]
     Route: 048

REACTIONS (2)
  - CONDITION AGGRAVATED [None]
  - RHEUMATOID ARTHRITIS [None]
